FAERS Safety Report 18777246 (Version 1)
Quarter: 2021Q1

REPORT INFORMATION
  Report Type: Spontaneous
  Country: US (occurrence: US)
  Receive Date: 20210122
  Receipt Date: 20210122
  Transmission Date: 20210419
  Serious: Yes (Hospitalization, Other)
  Sender: FDA-Public Use
  Company Number: US-PURDUE-USA-2020-0198492

PATIENT
  Sex: Female

DRUGS (2)
  1. OXYCONTIN [Suspect]
     Active Substance: OXYCODONE HYDROCHLORIDE
     Indication: PAIN
     Dosage: UNK
     Route: 048
  2. FENTANYL. [Suspect]
     Active Substance: FENTANYL
     Indication: PAIN MANAGEMENT
     Dosage: 25 MCG, Q1H
     Route: 062

REACTIONS (16)
  - Somnolence [Unknown]
  - Diarrhoea [Unknown]
  - Hysterectomy [Unknown]
  - Plantar fasciitis [Unknown]
  - Snake bite [Unknown]
  - Knee arthroplasty [Unknown]
  - Decreased appetite [Unknown]
  - Cystocele [Unknown]
  - Osteonecrosis [Unknown]
  - Inguinal hernia [Unknown]
  - Hip arthroplasty [Unknown]
  - Drug dependence [Unknown]
  - Chills [Unknown]
  - Vacuum aspiration [Unknown]
  - Hyperhidrosis [Unknown]
  - Vomiting [Unknown]

NARRATIVE: CASE EVENT DATE: 200706
